FAERS Safety Report 6217758-1 (Version None)
Quarter: 2009Q2

REPORT INFORMATION
  Report Type: 
  Country: None (occurrence: None)
  Receive Date: 20090604
  Receipt Date: 20090604
  Transmission Date: 20091009
  Serious: Yes (Hospitalization)
  Sender: FDA-Public Use
  Company Number: None

PATIENT
  Age: 70 Year
  Sex: Male
  Weight: 72.7 kg

DRUGS (2)
  1. CAPECITABINE [Suspect]
     Indication: COLON CANCER
     Dosage: 2 GM BID PO
     Route: 048
     Dates: start: 20090505, end: 20090520
  2. WARFARIN SODIUM [Suspect]
     Dosage: 5 MG HS PO
     Route: 048
     Dates: start: 20090420, end: 20090601

REACTIONS (2)
  - HAEMATURIA [None]
  - HAEMORRHAGE [None]
